FAERS Safety Report 5897820-3 (Version None)
Quarter: 2008Q3

REPORT INFORMATION
  Report Type: 
  Country: None (occurrence: None)
  Receive Date: 20080923
  Receipt Date: 20080918
  Transmission Date: 20090109
  Serious: Yes (Death)
  Sender: FDA-Public Use
  Company Number: 2008JP004313

PATIENT
  Age: 1 Year
  Sex: Male

DRUGS (5)
  1. FUNGUARD            (MICAFUNGIN) INJECTION [Suspect]
     Dosage: 10 MG,  / D, IV DRIP;  50 MG,  /D, IV DRIP
     Route: 041
     Dates: start: 20080516, end: 20080528
  2. FUNGUARD            (MICAFUNGIN) INJECTION [Suspect]
     Dosage: 10 MG,  / D, IV DRIP;  50 MG,  /D, IV DRIP
     Route: 041
     Dates: start: 20080529, end: 20080530
  3. KEITEN (CEFPIROME SULFATE) INJECTION [Concomitant]
  4. GRANULOCYTE COLONY STIMULATING FACTOR (GRANULOCYTE COLONY STIMULATING [Concomitant]
  5. PENICILLIN   (PIPERACILLIN SODIUM) FORMULATION UNKNOWN [Concomitant]

REACTIONS (7)
  - DISSEMINATED INTRAVASCULAR COAGULATION [None]
  - DRUG INEFFECTIVE [None]
  - FUNGUS SEROLOGY TEST POSITIVE [None]
  - GASTROINTESTINAL HAEMORRHAGE [None]
  - HISTIOCYTOSIS HAEMATOPHAGIC [None]
  - LIVER ABSCESS [None]
  - PYREXIA [None]
